FAERS Safety Report 9924847 (Version 1)
Quarter: 2014Q1

REPORT INFORMATION
  Report Type: Spontaneous
  Country: US (occurrence: US)
  Receive Date: 20140226
  Receipt Date: 20140226
  Transmission Date: 20141002
  Serious: No
  Sender: FDA-Public Use
  Company Number: US-BAYER-2014-028970

PATIENT
  Age: 66 Year
  Sex: Male
  Weight: 85.71 kg

DRUGS (1)
  1. ALEVE CAPLET [Suspect]
     Indication: ANALGESIC THERAPY
     Dosage: 1 DF, TID
     Route: 048

REACTIONS (1)
  - Somnolence [Not Recovered/Not Resolved]
